FAERS Safety Report 8548067-3 (Version None)
Quarter: 2012Q3

REPORT INFORMATION
  Report Type: 
  Country: None (occurrence: None)
  Receive Date: 20120730
  Receipt Date: 20120717
  Transmission Date: 20120928
  Serious: Yes (Other)
  Sender: FDA-Public Use
  Company Number: AU-ROCHE-1092812

PATIENT
  Sex: Female
  Weight: 80 kg

DRUGS (7)
  1. ENOXAPARIN SODIUM [Concomitant]
     Indication: ELECTROCARDIOGRAM ST SEGMENT ELEVATION
     Route: 042
  2. METALYSE [Suspect]
     Indication: ELECTROCARDIOGRAM ST SEGMENT ELEVATION
     Route: 065
     Dates: start: 20120713
  3. ONDANSETRON [Concomitant]
     Indication: ELECTROCARDIOGRAM ST SEGMENT ELEVATION
     Route: 048
     Dates: start: 20120713
  4. METALYSE [Suspect]
     Indication: THROMBOLYSIS
  5. MORPHINE SULFATE [Concomitant]
     Indication: ELECTROCARDIOGRAM ST SEGMENT ELEVATION
     Route: 048
     Dates: start: 20120713
  6. ENOXAPARIN SODIUM [Concomitant]
     Route: 058
     Dates: start: 20120713
  7. CLOPIDOGREL [Concomitant]
     Indication: ELECTROCARDIOGRAM ST SEGMENT ELEVATION
     Route: 048
     Dates: start: 20120713

REACTIONS (6)
  - ELECTROCARDIOGRAM ST SEGMENT ELEVATION [None]
  - DRUG INEFFECTIVE [None]
  - ELECTROCARDIOGRAM ST SEGMENT DEPRESSION [None]
  - PRODUCT QUALITY ISSUE [None]
  - BRADYCARDIA [None]
  - CHEST PAIN [None]
